FAERS Safety Report 17480915 (Version 2)
Quarter: 2022Q3

REPORT INFORMATION
  Report Type: Spontaneous
  Country: ES (occurrence: ES)
  Receive Date: 20200302
  Receipt Date: 20220908
  Transmission Date: 20221026
  Serious: Yes (Other)
  Sender: FDA-Public Use
  Company Number: ES-SUN PHARMACEUTICAL INDUSTRIES LTD-2020R1-238532

PATIENT
  Age: 45 Year
  Sex: Male

DRUGS (2)
  1. TOPIRAMATE [Suspect]
     Active Substance: TOPIRAMATE
     Indication: Drug dependence
     Dosage: 25 MILLIGRAM, DAILY
     Route: 065
  2. TOPIRAMATE [Suspect]
     Active Substance: TOPIRAMATE
     Dosage: 50 MILLIGRAM, DAILY
     Route: 065

REACTIONS (2)
  - Choroidal effusion [Recovered/Resolved]
  - Angle closure glaucoma [Recovering/Resolving]
